FAERS Safety Report 4687547-8 (Version None)
Quarter: 2005Q2

REPORT INFORMATION
  Report Type: 
  Country: None (occurrence: None)
  Receive Date: 20050610
  Receipt Date: 20050519
  Transmission Date: 20051028
  Serious: Yes (Other)
  Sender: FDA-Public Use
  Company Number: US-AMGEN-US134503

PATIENT
  Sex: Female

DRUGS (6)
  1. ARANESP [Suspect]
     Indication: ANAEMIA OF MALIGNANT DISEASE
     Route: 058
     Dates: start: 20050125, end: 20050506
  2. RITUXAN [Concomitant]
     Dates: start: 20050131, end: 20050425
  3. FLUDARABINE [Concomitant]
     Dates: start: 20050104, end: 20050426
  4. ALLOPURINOL [Concomitant]
     Dates: start: 20041213, end: 20050228
  5. FAMVIR [Concomitant]
     Dates: start: 20041129
  6. BACTRIM [Concomitant]
     Dates: start: 20050125, end: 20050304

REACTIONS (4)
  - ANAEMIA [None]
  - APLASIA PURE RED CELL [None]
  - BONE MARROW DEPRESSION [None]
  - MARROW HYPERPLASIA [None]
